FAERS Safety Report 9242521 (Version 1)
Quarter: 2013Q2

REPORT INFORMATION
  Report Type: Spontaneous
  Country: US (occurrence: US)
  Receive Date: 20130419
  Receipt Date: 20130419
  Transmission Date: 20140414
  Serious: No
  Sender: FDA-Public Use
  Company Number: US-PFIZER INC-2013121186

PATIENT
  Age: 62 Year
  Sex: Female

DRUGS (4)
  1. XELJANZ [Suspect]
     Indication: RHEUMATOID ARTHRITIS
     Dosage: 5 MG, 2X/DAY
     Route: 048
     Dates: start: 20130312, end: 20130404
  2. AVELOX [Concomitant]
     Dosage: 400 MG, 1X/DAY
  3. TUSSIONEX [Concomitant]
     Dosage: UNK
  4. MEDROL DOSEPAK [Concomitant]
     Dosage: UNK

REACTIONS (1)
  - Gastrointestinal disorder [Unknown]
